FAERS Safety Report 13039778 (Version 2)
Quarter: 2017Q2

REPORT INFORMATION
  Report Type: Spontaneous
  Country: US (occurrence: US)
  Receive Date: 20161219
  Receipt Date: 20170503
  Transmission Date: 20170830
  Serious: No
  Sender: FDA-Public Use
  Company Number: US-ACTELION-A-US2016-140448

PATIENT
  Age: 70 Year
  Sex: Female

DRUGS (28)
  1. UPTRAVI [Suspect]
     Active Substance: SELEXIPAG
     Indication: PULMONARY HYPERTENSION
     Dosage: 800 MCG, UNK
     Route: 048
     Dates: start: 20160726
  2. UPTRAVI [Suspect]
     Active Substance: SELEXIPAG
     Dosage: 1200 MCG, BID
     Route: 048
     Dates: start: 20161104
  3. COLCHICINE. [Concomitant]
     Active Substance: COLCHICINE
  4. NEXIUM [Concomitant]
     Active Substance: ESOMEPRAZOLE MAGNESIUM
  5. GUAIFENESIN AND DEXTROMETORPHAN HYDROBROMIDE [Concomitant]
  6. UPTRAVI [Suspect]
     Active Substance: SELEXIPAG
     Dosage: 1000 MCG, BID
     Route: 048
  7. CALCIUM PLUS D3 [Concomitant]
  8. DIGOXIN. [Concomitant]
     Active Substance: DIGOXIN
  9. ADCIRCA [Concomitant]
     Active Substance: TADALAFIL
  10. UPTRAVI [Suspect]
     Active Substance: SELEXIPAG
     Dosage: 400 MCG, BID
     Route: 048
     Dates: start: 20160705
  11. MAGNESIUM [Concomitant]
     Active Substance: MAGNESIUM
  12. IMURAN [Concomitant]
     Active Substance: AZATHIOPRINE
  13. MULTIVITAMINS W/MINERALS [Concomitant]
     Active Substance: MINERALS\VITAMINS
  14. POTASSIUM [Concomitant]
     Active Substance: POTASSIUM
  15. MACROGOL [Concomitant]
     Active Substance: POLYETHYLENE GLYCOLS
  16. UPTRAVI [Suspect]
     Active Substance: SELEXIPAG
     Dosage: 1000 MCG, BID
     Route: 048
     Dates: start: 20161105
  17. UPTRAVI [Suspect]
     Active Substance: SELEXIPAG
     Dosage: 1200 MCG, BID
     Route: 048
     Dates: start: 20161112
  18. AMIODARONE [Concomitant]
     Active Substance: AMIODARONE
  19. BUMEX [Concomitant]
     Active Substance: BUMETANIDE
  20. PREDNISONE. [Concomitant]
     Active Substance: PREDNISONE
  21. CYANOCOBALAMIN. [Concomitant]
     Active Substance: CYANOCOBALAMIN
  22. POLYETHYLENE GLYCOL [Concomitant]
     Active Substance: POLYETHYLENE GLYCOLS
  23. AMBRISENTAN [Suspect]
     Active Substance: AMBRISENTAN
     Indication: PULMONARY HYPERTENSION
     Dosage: 10 MG, QD
     Route: 048
     Dates: start: 20150717
  24. COUMADIN [Concomitant]
     Active Substance: WARFARIN SODIUM
  25. CALCITONIN [Concomitant]
     Active Substance: CALCITONIN
  26. EVISTA [Concomitant]
     Active Substance: RALOXIFENE HYDROCHLORIDE
  27. LACTOBACILLUS ACIDOPHILUS [Concomitant]
     Active Substance: LACTOBACILLUS ACIDOPHILUS
  28. SPIRONOLACTONE. [Concomitant]
     Active Substance: SPIRONOLACTONE

REACTIONS (2)
  - Headache [Recovered/Resolved]
  - Pain in jaw [Unknown]

NARRATIVE: CASE EVENT DATE: 20160726
